FAERS Safety Report 14646895 (Version 3)
Quarter: 2018Q3

REPORT INFORMATION
  Report Type: Spontaneous
  Country: FR (occurrence: FR)
  Receive Date: 20180316
  Receipt Date: 20180807
  Transmission Date: 20181010
  Serious: Yes (Other)
  Sender: FDA-Public Use
  Company Number: FR-MERCK KGAA-2043899

PATIENT
  Age: 51 Year
  Sex: Female

DRUGS (2)
  1. LEVOTHYROX NF [Suspect]
     Active Substance: LEVOTHYROXINE SODIUM
     Dates: end: 20171003
  2. NOVOTHYROX [Suspect]
     Active Substance: LEVOTHYROXINE SODIUM
     Indication: POST PROCEDURAL HYPOTHYROIDISM
     Dates: start: 201706

REACTIONS (14)
  - Dyspnoea [None]
  - Swelling [None]
  - Blood thyroid stimulating hormone increased [Recovered/Resolved]
  - Heart rate increased [None]
  - Dysphagia [Not Recovered/Not Resolved]
  - Throat tightness [Recovering/Resolving]
  - Throat irritation [Not Recovered/Not Resolved]
  - Chest pain [Recovering/Resolving]
  - Alopecia [Recovering/Resolving]
  - Palpitations [Recovering/Resolving]
  - Depression [Recovering/Resolving]
  - Hyperthyroidism [Recovered/Resolved]
  - Fatigue [Recovering/Resolving]
  - Pain in extremity [Recovering/Resolving]

NARRATIVE: CASE EVENT DATE: 201707
